FAERS Safety Report 21751713 (Version 1)
Quarter: 2022Q4

REPORT INFORMATION
  Report Type: Other
  Country: GB (occurrence: GB)
  Receive Date: 20221220
  Receipt Date: 20221220
  Transmission Date: 20230113
  Serious: Yes (Other)
  Sender: FDA-Public Use
  Company Number: GB-GLENMARK PHARMACEUTICALS-2022GMK077184

PATIENT

DRUGS (1)
  1. GABAPENTIN [Suspect]
     Active Substance: GABAPENTIN
     Indication: Ill-defined disorder
     Dosage: UNK
     Route: 065
     Dates: start: 20221208

REACTIONS (1)
  - Dizziness postural [Recovered/Resolved]

NARRATIVE: CASE EVENT DATE: 20221208
